FAERS Safety Report 23623892 (Version 1)
Quarter: 2024Q1

REPORT INFORMATION
  Report Type: Spontaneous
  Country: ES (occurrence: ES)
  Receive Date: 20240312
  Receipt Date: 20240312
  Transmission Date: 20240410
  Serious: Yes (Hospitalization)
  Sender: FDA-Public Use
  Company Number: ES-PURDUE-USA-2024-0308260

PATIENT
  Age: 60 Year
  Sex: Female

DRUGS (2)
  1. FENOFIBRATE [Suspect]
     Active Substance: FENOFIBRATE
     Indication: Hyperlipidaemia
     Dosage: 250 MILLIGRAM, DAILY
     Route: 065
  2. RALOXIFENE [Suspect]
     Active Substance: RALOXIFENE
     Indication: Osteoporosis
     Dosage: 60 MILLIGRAM, DAILY
     Route: 065

REACTIONS (5)
  - Jaundice [Unknown]
  - Lymphopenia [Unknown]
  - Rash [Unknown]
  - Pyrexia [Unknown]
  - Eosinophilia [Unknown]
